FAERS Safety Report 5479129-5 (Version None)
Quarter: 2007Q4

REPORT INFORMATION
  Report Type: 
  Country: None (occurrence: None)
  Receive Date: 20071006
  Receipt Date: 20070925
  Transmission Date: 20080405
  Serious: Yes (Other)
  Sender: FDA-Public Use
  Company Number: US-PFIZER INC-2007081918

PATIENT
  Sex: Female
  Weight: 79.8 kg

DRUGS (11)
  1. EXUBERA [Suspect]
     Indication: TYPE 2 DIABETES MELLITUS
     Route: 055
  2. EXUBERA [Suspect]
  3. AMOXICILLIN [Suspect]
     Indication: DENTAL TREATMENT
  4. GLIBURIDE/METFORMIN HYDROCHLORIDE [Suspect]
     Indication: BLOOD GLUCOSE ABNORMAL
     Dosage: TEXT:5/1000 MG
     Dates: start: 20070901, end: 20070916
  5. ACTOS [Concomitant]
  6. ALTACE [Concomitant]
  7. LOPRESSOR [Concomitant]
  8. LIPITOR [Concomitant]
  9. ZETIA [Concomitant]
  10. ACETYLSALICYLIC ACID [Concomitant]
  11. GLUCOVANCE [Concomitant]
     Dates: end: 20070901

REACTIONS (3)
  - HYPERSENSITIVITY [None]
  - ISCHAEMIA [None]
  - PHARYNGEAL OEDEMA [None]
